FAERS Safety Report 25887310 (Version 1)
Quarter: 2025Q4

REPORT INFORMATION
  Report Type: Spontaneous
  Country: EU (occurrence: EU)
  Receive Date: 20251006
  Receipt Date: 20251006
  Transmission Date: 20260117
  Serious: Yes (Hospitalization)
  Sender: SANDOZ
  Company Number: EU-AFSSAPS-GR2025001426

PATIENT
  Age: 73 Year
  Sex: Male
  Weight: 73 kg

DRUGS (6)
  1. ALPRAZOLAM [Suspect]
     Active Substance: ALPRAZOLAM
     Indication: Suicide attempt
     Dosage: 15 MG (60 TABLETS OF 0.25 MG)
     Route: 065
     Dates: start: 20250830
  2. BROMAZEPAM [Suspect]
     Active Substance: BROMAZEPAM
     Indication: Suicide attempt
     Dosage: UNK
     Route: 048
     Dates: start: 20250830, end: 20250830
  3. DEPAKOTE [Suspect]
     Active Substance: DIVALPROEX SODIUM
     Indication: Suicide attempt
     Dosage: 3 G (6 TABLETS OF 500MG)
     Route: 065
  4. HYDROXYZINE [Suspect]
     Active Substance: HYDROXYZINE HYDROCHLORIDE
     Indication: Suicide attempt
     Dosage: APPARENTLY } 300 MG
     Route: 065
  5. ACETAMINOPHEN [Suspect]
     Active Substance: ACETAMINOPHEN
     Indication: Product used for unknown indication
     Dosage: UNK
     Route: 065
  6. VENLAFAXINE [Suspect]
     Active Substance: VENLAFAXINE HYDROCHLORIDE
     Indication: Suicide attempt
     Dosage: 750 MG (10 TABLETS)
     Route: 065
     Dates: start: 20250830

REACTIONS (6)
  - Suicide attempt [Unknown]
  - Coma [Recovering/Resolving]
  - Acute respiratory failure [Recovering/Resolving]
  - Poisoning deliberate [Recovered/Resolved]
  - Hyperthermia [Unknown]
  - Overdose [Unknown]

NARRATIVE: CASE EVENT DATE: 20250830
